FAERS Safety Report 11378932 (Version 1)
Quarter: 2015Q3

REPORT INFORMATION
  Report Type: Spontaneous
  Country: US (occurrence: US)
  Receive Date: 20150811
  Receipt Date: 20150811
  Transmission Date: 20151125
  Serious: Yes (Other)
  Sender: FDA-Public Use
  Company Number: US-ELI_LILLY_AND_COMPANY-US200804007528

PATIENT
  Age: 31 Year
  Sex: Male

DRUGS (1)
  1. CIALIS [Suspect]
     Active Substance: TADALAFIL
     Dosage: 10 MG, AS NEEDED
     Dates: start: 20080405

REACTIONS (3)
  - High density lipoprotein decreased [Recovering/Resolving]
  - Cerebrovascular accident [Recovering/Resolving]
  - Low density lipoprotein decreased [Recovering/Resolving]

NARRATIVE: CASE EVENT DATE: 20080419
